FAERS Safety Report 6205742-3 (Version None)
Quarter: 2009Q2

REPORT INFORMATION
  Report Type: 
  Country: None (occurrence: None)
  Receive Date: 20090527
  Receipt Date: 20090421
  Transmission Date: 20091009
  Serious: No
  Sender: FDA-Public Use
  Company Number: US-ABBOTT-09P-163-0569577-00

PATIENT
  Sex: Female
  Weight: 104.42 kg

DRUGS (12)
  1. SIMCOR [Suspect]
     Indication: DRUG USE FOR UNKNOWN INDICATION
  2. MELOXICAM [Concomitant]
     Indication: ARTHRITIS
  3. LISINOPRIL [Concomitant]
     Indication: BLOOD PRESSURE
  4. ASPIRIN [Concomitant]
     Indication: DRUG USE FOR UNKNOWN INDICATION
  5. ADVICOR [Concomitant]
     Indication: BLOOD CHOLESTEROL
  6. ATENOLOL [Concomitant]
     Indication: BLOOD PRESSURE
  7. ARICEPT [Concomitant]
     Indication: DRUG USE FOR UNKNOWN INDICATION
  8. VESICARE [Concomitant]
     Indication: BLADDER DISORDER
  9. GLUCOSAMINE + CHONDROITIN [Concomitant]
     Indication: DRUG USE FOR UNKNOWN INDICATION
  10. GARLIC [Concomitant]
     Indication: DRUG USE FOR UNKNOWN INDICATION
  11. CALTRATE + D [Concomitant]
     Indication: DRUG USE FOR UNKNOWN INDICATION
  12. WATER PILL [Concomitant]
     Indication: DRUG USE FOR UNKNOWN INDICATION

REACTIONS (2)
  - BLOOD PRESSURE INCREASED [None]
  - EAR HAEMORRHAGE [None]
